FAERS Safety Report 20579503 (Version 2)
Quarter: 2022Q1

REPORT INFORMATION
  Report Type: Report from Study
  Country: US (occurrence: US)
  Receive Date: 20220310
  Receipt Date: 20220323
  Transmission Date: 20220423
  Serious: Yes (Death, Hospitalization)
  Sender: FDA-Public Use
  Company Number: US-ABBVIE-22K-163-4310134-00

PATIENT
  Sex: Male

DRUGS (9)
  1. VENCLEXTA [Suspect]
     Active Substance: VENETOCLAX
     Indication: Chronic lymphocytic leukaemia
     Dosage: WEEK 1
     Route: 048
     Dates: start: 20211025, end: 20211031
  2. VENCLEXTA [Suspect]
     Active Substance: VENETOCLAX
     Dosage: WEEK 2
     Route: 048
     Dates: start: 20211101, end: 20211107
  3. VENCLEXTA [Suspect]
     Active Substance: VENETOCLAX
     Dosage: WEEK 3
     Route: 048
     Dates: start: 20211108, end: 20211114
  4. VENCLEXTA [Suspect]
     Active Substance: VENETOCLAX
     Dosage: WEEK 4
     Route: 048
     Dates: start: 20211115, end: 20211121
  5. VENCLEXTA [Suspect]
     Active Substance: VENETOCLAX
     Dosage: DO NOT CHEW, CRUSH OR BREAK TABLETS
     Route: 048
     Dates: start: 20211122, end: 20220111
  6. OXYCODONE [Concomitant]
     Active Substance: OXYCODONE
     Indication: Product used for unknown indication
  7. MODERNA COVID-19 VACCINE [Concomitant]
     Active Substance: ELASOMERAN
     Indication: COVID-19 immunisation
     Route: 030
     Dates: start: 20210329, end: 20210329
  8. MODERNA COVID-19 VACCINE [Concomitant]
     Active Substance: ELASOMERAN
     Route: 030
     Dates: start: 20210422, end: 20210422
  9. MODERNA COVID-19 VACCINE [Concomitant]
     Active Substance: ELASOMERAN
     Route: 030
     Dates: start: 20211228, end: 20211228

REACTIONS (12)
  - COVID-19 [Fatal]
  - Pulmonary embolism [Fatal]
  - Dyspnoea [Unknown]
  - Cough [Unknown]
  - Pulmonary hypertension [Fatal]
  - Respiratory failure [Fatal]
  - Herpes simplex encephalitis [Fatal]
  - Dyspnoea [Not Recovered/Not Resolved]
  - Pain [Unknown]
  - Cough [Unknown]
  - Chills [Unknown]
  - Cough [Unknown]

NARRATIVE: CASE EVENT DATE: 20220101
